FAERS Safety Report 8828366 (Version 2)
Quarter: 2012Q4

REPORT INFORMATION
  Report Type: 
  Country: US (occurrence: US)
  Receive Date: 20121005
  Receipt Date: 20121101
  Transmission Date: 20130627
  Serious: Yes (Hospitalization)
  Sender: FDA-Public Use
  Company Number: US-ELI_LILLY_AND_COMPANY-US201210000271

PATIENT
  Sex: Female

DRUGS (6)
  1. HUMATROPE [Suspect]
     Indication: HYPOPITUITARISM
     Dosage: UNK
     Route: 065
     Dates: start: 2002
  2. HUMATROPE [Suspect]
     Dosage: 6 mg, qd
     Dates: start: 201207
  3. TORSEMIDE [Concomitant]
  4. LASIX [Concomitant]
  5. SYNTHROID [Concomitant]
  6. POTASSIUM [Concomitant]

REACTIONS (4)
  - Renal disorder [Unknown]
  - Oedema [Unknown]
  - Blood potassium decreased [Unknown]
  - Malaise [Unknown]
